FAERS Safety Report 7231246-5 (Version None)
Quarter: 2011Q1

REPORT INFORMATION
  Report Type: 
  Country: None (occurrence: None)
  Receive Date: 20110118
  Receipt Date: 20110112
  Transmission Date: 20110831
  Serious: Yes (Other)
  Sender: FDA-Public Use
  Company Number: B0694095A

PATIENT
  Sex: Female

DRUGS (1)
  1. MALARONE [Suspect]
     Indication: MALARIA PROPHYLAXIS
     Route: 065
     Dates: start: 20110102, end: 20110102

REACTIONS (9)
  - VOMITING [None]
  - DIARRHOEA [None]
  - DIZZINESS [None]
  - NAUSEA [None]
  - DEHYDRATION [None]
  - PYREXIA [None]
  - LIVER FUNCTION TEST ABNORMAL [None]
  - RASH [None]
  - CHILLS [None]
